FAERS Safety Report 9482207 (Version 1)
Quarter: 2013Q3

REPORT INFORMATION
  Report Type: Spontaneous
  Country: US (occurrence: US)
  Receive Date: 20130828
  Receipt Date: 20130828
  Transmission Date: 20140515
  Serious: No
  Sender: FDA-Public Use
  Company Number: US-BAYER-2013-103836

PATIENT
  Age: 74 Year
  Sex: Female
  Weight: 86.17 kg

DRUGS (3)
  1. ALEVE CAPLET [Suspect]
     Indication: PAIN
     Dosage: 1 DF, UNK
     Route: 048
     Dates: start: 2012
  2. ALEVE CAPLET [Suspect]
     Indication: PAIN
     Dosage: 2 DF, DAILY
     Dates: start: 201308
  3. IBUPROFEN [Concomitant]

REACTIONS (3)
  - Flatulence [None]
  - Incorrect drug administration duration [None]
  - Incorrect drug administration duration [None]
